FAERS Safety Report 4519516-2 (Version None)
Quarter: 2004Q4

REPORT INFORMATION
  Report Type: 
  Country: None (occurrence: None)
  Receive Date: 20041202
  Receipt Date: 20041123
  Transmission Date: 20050328
  Serious: Yes (Hospitalization)
  Sender: FDA-Public Use
  Company Number: 2004-11-1363

PATIENT
  Sex: Male

DRUGS (1)
  1. BETAMETHASONE DIPROPIONATE [Suspect]
     Indication: ARTHRALGIA
     Dosage: 1 DOSE(S)

REACTIONS (5)
  - DYSPNOEA [None]
  - MEDICATION ERROR [None]
  - PALPITATIONS [None]
  - PULMONARY EMBOLISM [None]
  - TACHYCARDIA [None]
